FAERS Safety Report 7678036-7 (Version None)
Quarter: 2011Q3

REPORT INFORMATION
  Report Type: 
  Country: None (occurrence: None)
  Receive Date: 20110811
  Receipt Date: 20110808
  Transmission Date: 20111222
  Serious: Yes (Other)
  Sender: FDA-Public Use
  Company Number: GB-GLAXOSMITHKLINE-B0737830A

PATIENT
  Age: 34 Year
  Sex: Male
  Weight: 59 kg

DRUGS (17)
  1. VANCOMYCIN [Concomitant]
     Indication: INFECTION
     Dosage: 1G PER DAY
     Route: 042
     Dates: start: 20110517, end: 20110530
  2. MEROPENEM [Concomitant]
     Indication: INFECTION
     Dosage: 1500G PER DAY
     Route: 042
     Dates: start: 20110517, end: 20110613
  3. PROGRAF [Concomitant]
     Indication: IMMUNOSUPPRESSION
     Route: 048
     Dates: start: 20110426
  4. AMIKACIN [Concomitant]
     Indication: INFECTION
     Dosage: 610G PER DAY
     Route: 042
     Dates: start: 20110603, end: 20110613
  5. OMEPRAZOLE [Concomitant]
     Dosage: 40MG PER DAY
     Route: 048
     Dates: start: 20110512
  6. MIRTAZAPINE [Concomitant]
     Dosage: 45G PER DAY
     Route: 048
  7. VENLAFAXINE [Concomitant]
     Dosage: 37.5MG PER DAY
     Route: 048
     Dates: start: 20110527
  8. VALGANCICLOVIR HYDROCHLORIDE (VALCYTE) [Concomitant]
     Dosage: 450MG PER DAY
     Route: 048
     Dates: start: 20110521
  9. ATOVAQUONE [Suspect]
     Indication: PROPHYLAXIS
     Dosage: 1500MG PER DAY
     Route: 048
     Dates: start: 20110525, end: 20110613
  10. FUROSEMIDE [Concomitant]
     Dates: start: 20110525, end: 20110529
  11. GENTAMICIN [Concomitant]
     Indication: INFECTION
     Dosage: 300MG PER DAY
     Route: 042
     Dates: start: 20110526
  12. TRAMADOL HCL [Concomitant]
     Route: 048
     Dates: start: 20110501
  13. ZOPICLONE [Concomitant]
     Dosage: 7.5G PER DAY
     Route: 048
  14. ENOXAPARIN [Concomitant]
     Dosage: 100MG PER DAY
     Route: 058
     Dates: start: 20110514
  15. AMBISOME [Concomitant]
     Dosage: 75MG PER DAY
     Route: 042
     Dates: start: 20110424, end: 20110613
  16. ACETAMINOPHEN [Concomitant]
     Dosage: 1G PER DAY
     Route: 048
     Dates: start: 20110429
  17. METHYLPREDNISOLONE [Concomitant]
     Indication: IMMUNOSUPPRESSION
     Route: 042
     Dates: start: 20110526, end: 20110528

REACTIONS (1)
  - LIVER FUNCTION TEST ABNORMAL [None]
